FAERS Safety Report 21024228 (Version 1)
Quarter: 2022Q3

REPORT INFORMATION
  Report Type: Spontaneous
  Country: US (occurrence: US)
  Receive Date: 20220629
  Receipt Date: 20220629
  Transmission Date: 20221027
  Serious: Yes (Other)
  Sender: FDA-Public Use
  Company Number: US-NOVARTISPH-NVSC2022US145949

PATIENT
  Age: 67 Year
  Sex: Female

DRUGS (8)
  1. TACROLIMUS [Suspect]
     Active Substance: TACROLIMUS
     Indication: Prophylaxis against graft versus host disease
     Dosage: UNK
     Route: 065
  2. TACROLIMUS [Suspect]
     Active Substance: TACROLIMUS
     Indication: Stem cell transplant
  3. SIROLIMUS [Suspect]
     Active Substance: SIROLIMUS
     Indication: Prophylaxis against graft versus host disease
     Dosage: UNK
     Route: 065
  4. SIROLIMUS [Suspect]
     Active Substance: SIROLIMUS
     Indication: Stem cell transplant
  5. ACYCLOVIR [Concomitant]
     Active Substance: ACYCLOVIR
     Indication: Infection prophylaxis
     Dosage: UNK
     Route: 065
  6. PENTAMIDINE [Concomitant]
     Active Substance: PENTAMIDINE
     Indication: Infection prophylaxis
     Dosage: UNK
     Route: 065
  7. MICAFUNGIN [Concomitant]
     Active Substance: MICAFUNGIN
     Indication: Infection prophylaxis
     Dosage: UNK
     Route: 065
  8. SULFAMETHOXAZOLE\TRIMETHOPRIM [Concomitant]
     Active Substance: SULFAMETHOXAZOLE\TRIMETHOPRIM
     Indication: Infection prophylaxis
     Dosage: UNK
     Route: 065

REACTIONS (3)
  - Toxic epidermal necrolysis [Unknown]
  - Acute graft versus host disease [Recovered/Resolved]
  - Product use in unapproved indication [Unknown]
